FAERS Safety Report 9891693 (Version 2)
Quarter: 2014Q1

REPORT INFORMATION
  Report Type: Spontaneous
  Country: US (occurrence: US)
  Receive Date: 20140212
  Receipt Date: 20140313
  Transmission Date: 20141002
  Serious: Yes (Hospitalization, Other)
  Sender: FDA-Public Use
  Company Number: US-TEVA-461275USA

PATIENT
  Age: 61 Year
  Sex: Female
  Weight: 85.35 kg

DRUGS (4)
  1. ACTIQ [Suspect]
     Indication: PAIN
     Dates: start: 2004, end: 2013
  2. NUCYNTA [Suspect]
     Indication: PAIN
  3. VALIUM [Concomitant]
  4. LEVOTHYROXINE [Concomitant]

REACTIONS (13)
  - Suicidal ideation [Not Recovered/Not Resolved]
  - Pain [Not Recovered/Not Resolved]
  - Headache [Not Recovered/Not Resolved]
  - Headache [Not Recovered/Not Resolved]
  - Eye pain [Not Recovered/Not Resolved]
  - Migraine [Not Recovered/Not Resolved]
  - Cellulitis [Not Recovered/Not Resolved]
  - Screaming [Not Recovered/Not Resolved]
  - Crying [Not Recovered/Not Resolved]
  - Weight decreased [Not Recovered/Not Resolved]
  - General physical health deterioration [Not Recovered/Not Resolved]
  - Skin ulcer [Unknown]
  - Off label use [Recovered/Resolved]
